FAERS Safety Report 21051918 (Version 1)
Quarter: 2022Q3

REPORT INFORMATION
  Report Type: Spontaneous
  Country: US (occurrence: None)
  Receive Date: 20220706
  Receipt Date: 20220706
  Transmission Date: 20221027
  Serious: Yes (Other)
  Sender: FDA-Public Use
  Company Number: None

PATIENT
  Age: 65 Year
  Sex: Female
  Weight: 99 kg

DRUGS (4)
  1. PAXLOVID [Suspect]
     Active Substance: NIRMATRELVIR\RITONAVIR
     Indication: COVID-19
     Dosage: FREQUENCY : TWICE A DAY;?
     Route: 048
     Dates: start: 20220704, end: 20220705
  2. LOSARTAN [Concomitant]
     Active Substance: LOSARTAN
     Dates: start: 20210803
  3. cholecalciferol 25mcg [Concomitant]
     Dates: start: 20210803
  4. MELATONIN [Concomitant]
     Active Substance: MELATONIN
     Dates: start: 20210803

REACTIONS (3)
  - Vomiting [None]
  - Myalgia [None]
  - Blood pressure increased [None]

NARRATIVE: CASE EVENT DATE: 20220704
